FAERS Safety Report 4783045-1 (Version None)
Quarter: 2005Q3

REPORT INFORMATION
  Report Type: 
  Country: None (occurrence: None)
  Receive Date: 20050927
  Receipt Date: 20050914
  Transmission Date: 20060218
  Serious: Yes (Other)
  Sender: FDA-Public Use
  Company Number: 2005127432

PATIENT
  Sex: Male

DRUGS (1)
  1. BENADRYL [Suspect]
     Dosage: 16 TABLETS ONE TIME, ORAL
     Route: 048
     Dates: start: 20050914, end: 20050914

REACTIONS (2)
  - DEPRESSED LEVEL OF CONSCIOUSNESS [None]
  - OVERDOSE [None]
